FAERS Safety Report 6793507-3 (Version None)
Quarter: 2010Q2

REPORT INFORMATION
  Report Type: 
  Country: None (occurrence: None)
  Receive Date: 20100624
  Receipt Date: 20100507
  Transmission Date: 20101027
  Serious: Yes (Life-Threatening, Other)
  Sender: FDA-Public Use
  Company Number: US-MYLANLABS-2010S1006799

PATIENT
  Age: 59 Year
  Sex: Male

DRUGS (10)
  1. CLOZAPINE [Suspect]
     Route: 048
     Dates: end: 20100412
  2. CHEMOTHERAPEUTICS [Suspect]
     Indication: LUNG NEOPLASM MALIGNANT
  3. CELEXA [Concomitant]
  4. OMEPRAZOLE [Concomitant]
  5. NORVASC [Concomitant]
  6. ZOCOR [Concomitant]
  7. AGGRENOX [Concomitant]
  8. AMBIEN [Concomitant]
  9. SEROQUEL [Concomitant]
  10. COLACE [Concomitant]

REACTIONS (4)
  - AGRANULOCYTOSIS [None]
  - GRANULOCYTOPENIA [None]
  - LEUKOPENIA [None]
  - LUNG NEOPLASM MALIGNANT [None]
